APPROVED DRUG PRODUCT: BISOPROLOL FUMARATE AND HYDROCHLOROTHIAZIDE
Active Ingredient: BISOPROLOL FUMARATE; HYDROCHLOROTHIAZIDE
Strength: 5MG;6.25MG
Dosage Form/Route: TABLET;ORAL
Application: A075469 | Product #002
Applicant: WATSON LABORATORIES INC AN INDIRECT WHOLLY OWNED SUB OF TEVA PHARMACEUTICALS USA INC
Approved: Sep 25, 2000 | RLD: No | RS: No | Type: DISCN